FAERS Safety Report 18392920 (Version 1)
Quarter: 2020Q4

REPORT INFORMATION
  Report Type: Spontaneous
  Country: US (occurrence: US)
  Receive Date: 20201016
  Receipt Date: 20201016
  Transmission Date: 20210114
  Serious: No
  Sender: FDA-Public Use
  Company Number: US-TEVA-2020-US-1838929

PATIENT
  Age: 56 Year
  Sex: Female
  Weight: 56.25 kg

DRUGS (16)
  1. ADDERALL [Concomitant]
     Active Substance: AMPHETAMINE ASPARTATE\AMPHETAMINE SULFATE\DEXTROAMPHETAMINE SACCHARATE\DEXTROAMPHETAMINE SULFATE
  2. TRAZODONE [Concomitant]
     Active Substance: TRAZODONE HYDROCHLORIDE
     Route: 065
  3. VITAMIN B12 [Concomitant]
     Active Substance: CYANOCOBALAMIN
  4. TOPAMAX [Concomitant]
     Active Substance: TOPIRAMATE
  5. CIMETIDINE [Concomitant]
     Active Substance: CIMETIDINE
  6. BACLOFEN. [Concomitant]
     Active Substance: BACLOFEN
     Route: 065
  7. EFFEXOR XR [Concomitant]
     Active Substance: VENLAFAXINE HYDROCHLORIDE
  8. VITAMIN D [Concomitant]
     Active Substance: VITAMIN D NOS
  9. ROPINIROLE. [Concomitant]
     Active Substance: ROPINIROLE
  10. CITRACAL [Concomitant]
     Active Substance: CALCIUM CITRATE
  11. POTASSIUM [Concomitant]
     Active Substance: POTASSIUM
  12. CARBAMAZEPINE. [Concomitant]
     Active Substance: CARBAMAZEPINE
  13. GABAPENTIN. [Concomitant]
     Active Substance: GABAPENTIN
  14. COPAXONE [Suspect]
     Active Substance: GLATIRAMER ACETATE
     Indication: MULTIPLE SCLEROSIS
     Dosage: 17.1429 MILLIGRAM/MILLILITERS DAILY;
     Route: 065
  15. WELLBUTRIN XL [Concomitant]
     Active Substance: BUPROPION HYDROCHLORIDE
  16. MAGNESIUM [Concomitant]
     Active Substance: MAGNESIUM

REACTIONS (8)
  - Product storage error [Unknown]
  - Injection site induration [Unknown]
  - Burning sensation [Unknown]
  - Flushing [Recovered/Resolved]
  - Injection site pain [Unknown]
  - Injection site warmth [Not Recovered/Not Resolved]
  - Injection site haemorrhage [Unknown]
  - Injection site discolouration [Not Recovered/Not Resolved]

NARRATIVE: CASE EVENT DATE: 20201008
